FAERS Safety Report 5377466-6 (Version None)
Quarter: 2007Q3

REPORT INFORMATION
  Report Type: 
  Country: None (occurrence: None)
  Receive Date: 20070703
  Receipt Date: 20070629
  Transmission Date: 20080115
  Serious: Yes (Hospitalization)
  Sender: FDA-Public Use
  Company Number: US-JNJFOC-20060806620

PATIENT
  Sex: Female
  Weight: 87.54 kg

DRUGS (3)
  1. ORTHO EVRA [Suspect]
     Indication: OESTROGEN REPLACEMENT THERAPY
     Dates: start: 20040801
  2. COZAAR [Concomitant]
     Indication: HYPERTENSION
  3. PREVACID [Concomitant]

REACTIONS (5)
  - DEEP VEIN THROMBOSIS [None]
  - MIGRAINE [None]
  - OFF LABEL USE [None]
  - PULMONARY EMBOLISM [None]
  - VASCULITIS [None]
